FAERS Safety Report 8446284 (Version 6)
Quarter: 2015Q1

REPORT INFORMATION
  Report Type: Spontaneous
  Country: JP (occurrence: None)
  Receive Date: 20120301
  Receipt Date: 20150210
  Transmission Date: 20150721
  Serious: Yes (Other)
  Sender: FDA-Public Use
  Company Number: 2010JP000200

PATIENT
  Age: 25 Year
  Sex: Female
  Weight: 40 kg

DRUGS (12)
  1. PREDONINE [Suspect]
     Active Substance: PREDNISOLONE\PREDNISOLONE ACETATE\PREDNISOLONE SODIUM SUCCINATE
     Indication: SYSTEMIC LUPUS ERYTHEMATOSUS
     Route: 048
     Dates: start: 20081210, end: 20110726
  2. LIPOVAS (FENOFIBRATE) [Concomitant]
  3. PREDONINE [Suspect]
     Active Substance: PREDNISOLONE\PREDNISOLONE ACETATE\PREDNISOLONE SODIUM SUCCINATE
     Indication: PROPHYLAXIS
     Route: 048
     Dates: start: 20081210, end: 20110726
  4. PROGRAF [Suspect]
     Active Substance: TACROLIMUS\TACROLIMUS ANHYDROUS
     Indication: LUPUS NEPHRITIS
     Route: 048
     Dates: start: 20081210, end: 20110726
  5. ALFAROL [Concomitant]
     Active Substance: ALFACALCIDOL
  6. BREDNIN (MIZORIBINE) [Concomitant]
  7. PREDONINE [Suspect]
     Active Substance: PREDNISOLONE\PREDNISOLONE ACETATE\PREDNISOLONE SODIUM SUCCINATE
     Indication: PROTEIN URINE PRESENT
     Route: 048
     Dates: start: 20081210, end: 20110726
  8. FERROMIA (FERROUS SODIUM CITRATE) [Concomitant]
  9. METHYLPREDNISOLONE (METHYLPREDNISOLONE) [Concomitant]
     Active Substance: METHYLPREDNISOLONE
  10. PREDONINE [Suspect]
     Active Substance: PREDNISOLONE\PREDNISOLONE ACETATE\PREDNISOLONE SODIUM SUCCINATE
     Indication: LUPUS NEPHRITIS
     Route: 048
     Dates: start: 20081210, end: 20110726
  11. LOSARTAN POTASSIUM. [Concomitant]
     Active Substance: LOSARTAN POTASSIUM
  12. LIPITOR [Concomitant]
     Active Substance: ATORVASTATIN CALCIUM

REACTIONS (16)
  - Intentional product misuse [None]
  - Liver disorder [None]
  - Protein urine present [None]
  - Gamma-glutamyltransferase increased [None]
  - Pregnancy [None]
  - Lupus nephritis [None]
  - Abortion induced [None]
  - Hyperlipidaemia [None]
  - Drug ineffective [None]
  - Alanine aminotransferase increased [None]
  - Maternal exposure during pregnancy [None]
  - Premature labour [None]
  - Herpes zoster [None]
  - Low density lipoprotein increased [None]
  - Blood alkaline phosphatase increased [None]
  - Caesarean section [None]

NARRATIVE: CASE EVENT DATE: 20090311
